FAERS Safety Report 4475639-8 (Version None)
Quarter: 2004Q4

REPORT INFORMATION
  Report Type: 
  Country: None (occurrence: None)
  Receive Date: 20041015
  Receipt Date: 20041006
  Transmission Date: 20050328
  Serious: Yes (Hospitalization)
  Sender: FDA-Public Use
  Company Number: PHRM2004FR03056

PATIENT
  Age: 45 Year
  Sex: Male

DRUGS (3)
  1. TAREG [Suspect]
     Dosage: 40 MG, QD
     Route: 048
     Dates: start: 20040501, end: 20040906
  2. AOTAL [Suspect]
     Dosage: 333 MG, QD
     Route: 048
     Dates: start: 20040501, end: 20040903
  3. STRESAM [Concomitant]
     Route: 048

REACTIONS (11)
  - BLOOD BILIRUBIN INCREASED [None]
  - BLOOD FOLATE INCREASED [None]
  - BLOOD LACTATE DEHYDROGENASE INCREASED [None]
  - HAEMOGLOBIN DECREASED [None]
  - HAEMOLYTIC ANAEMIA [None]
  - HAPTOGLOBIN DECREASED [None]
  - MEAN CELL HAEMOGLOBIN INCREASED [None]
  - MEAN CELL VOLUME INCREASED [None]
  - PLATELET COUNT INCREASED [None]
  - RED BLOOD CELL SEDIMENTATION RATE INCREASED [None]
  - RETICULOCYTE COUNT INCREASED [None]
